FAERS Safety Report 9975257 (Version 1)
Quarter: 2014Q1

REPORT INFORMATION
  Report Type: Report from Study
  Country: US (occurrence: US)
  Receive Date: 20140306
  Receipt Date: 20140306
  Transmission Date: 20141002
  Serious: No
  Sender: FDA-Public Use
  Company Number: US-ABBVIE-13P-163-1161569-00

PATIENT
  Age: 30 Year
  Sex: Female

DRUGS (4)
  1. HUMIRA [Suspect]
     Indication: CROHN^S DISEASE
     Dates: start: 20130823
  2. DOXEPIN [Concomitant]
     Indication: ANXIETY
     Dosage: AT HOUR OF SLEEP
  3. METOPROLOL [Concomitant]
     Indication: HEART VALVE INCOMPETENCE
  4. ZYRTEC [Concomitant]
     Indication: TINNITUS

REACTIONS (2)
  - Nasopharyngitis [Not Recovered/Not Resolved]
  - Injection site pain [Not Recovered/Not Resolved]
